FAERS Safety Report 5948341-0 (Version None)
Quarter: 2008Q4

REPORT INFORMATION
  Report Type: 
  Country: None (occurrence: None)
  Receive Date: 20081111
  Receipt Date: 20081104
  Transmission Date: 20090506
  Serious: Yes (Life-Threatening, Other)
  Sender: FDA-Public Use
  Company Number: US-CELGENEUS-163-C5013-08040089

PATIENT
  Sex: Male

DRUGS (20)
  1. REVLIMID [Suspect]
     Indication: MULTIPLE MYELOMA
     Route: 048
     Dates: start: 20031103
  2. REVLIMID [Suspect]
     Indication: MULTIPLE MYELOMA
     Route: 048
     Dates: start: 20061208, end: 20080101
  3. AREDIA [Concomitant]
     Indication: SUPPLEMENTATION THERAPY
     Dates: start: 20030109
  4. NEULASTA [Concomitant]
     Indication: NEUTROPENIA
     Route: 065
     Dates: start: 20040126, end: 20040223
  5. KEFLEX [Concomitant]
     Indication: INFECTION
     Route: 065
     Dates: start: 20040107, end: 20040110
  6. KEFLEX [Concomitant]
     Route: 065
     Dates: start: 20040903, end: 20040913
  7. BENADRYL [Concomitant]
     Indication: RASH
     Route: 048
     Dates: start: 20040116, end: 20040119
  8. BENADRYL [Concomitant]
     Route: 065
     Dates: start: 20040313, end: 20040316
  9. TYLENOL FLU [Concomitant]
     Route: 065
     Dates: start: 20031211, end: 20031214
  10. NEUPOGEN [Concomitant]
     Indication: NEUTROPENIA
     Route: 065
     Dates: start: 20031229, end: 20040103
  11. TYLENOL [Concomitant]
     Route: 065
     Dates: start: 20040203, end: 20040207
  12. TYLENOL [Concomitant]
     Indication: SINUS CONGESTION
     Route: 065
     Dates: start: 20040828, end: 20040903
  13. TYLENOL [Concomitant]
     Indication: INFECTION
     Route: 065
     Dates: start: 20050331, end: 20050406
  14. L GLUTAMINE [Concomitant]
     Route: 065
     Dates: start: 20030606
  15. VASELINE [Concomitant]
     Indication: DRY SKIN
     Route: 065
     Dates: start: 20040302, end: 20040329
  16. VASELINE [Concomitant]
     Indication: DERMATITIS
  17. AUGMENTIN '125' [Concomitant]
     Route: 065
     Dates: start: 20050331, end: 20050409
  18. PROTOPIC [Concomitant]
     Indication: RASH
     Dosage: 0.1%
     Route: 065
     Dates: start: 20050506
  19. SUDAFED 12 HOUR [Concomitant]
     Indication: INFECTION
     Dates: start: 20060101, end: 20060101
  20. ASPIRIN [Concomitant]
     Indication: DRUG USE FOR UNKNOWN INDICATION
     Dates: start: 20060101

REACTIONS (1)
  - MYELODYSPLASTIC SYNDROME [None]
